FAERS Safety Report 6065985-9 (Version None)
Quarter: 2009Q1

REPORT INFORMATION
  Report Type: 
  Country: None (occurrence: None)
  Receive Date: 20090130
  Receipt Date: 20090116
  Transmission Date: 20090719
  Serious: Yes (Hospitalization)
  Sender: FDA-Public Use
  Company Number: FR-1168420

PATIENT
  Age: 84 Year
  Sex: Female

DRUGS (7)
  1. AZOPT [Suspect]
     Indication: MACULAR DEGENERATION
     Dosage: NI, OPHTHALMIC
     Route: 047
  2. FORLAX (MACROGOL) [Concomitant]
  3. DENSICAL D3(LEKOVIT CA) [Concomitant]
  4. FOSAMAX [Concomitant]
  5. KEPPRA [Concomitant]
  6. INEXIUM (ESOMEPRAZOLE SODIUM) [Concomitant]
  7. TIORFAN (ACETORPHAN) [Concomitant]

REACTIONS (5)
  - ERYTHEMA ANNULARE [None]
  - RASH PRURITIC [None]
  - RASH VESICULAR [None]
  - SKIN LESION [None]
  - SKIN PLAQUE [None]
